FAERS Safety Report 18446200 (Version 1)
Quarter: 2020Q4

REPORT INFORMATION
  Report Type: Spontaneous
  Country: CZ (occurrence: CZ)
  Receive Date: 20201030
  Receipt Date: 20201030
  Transmission Date: 20210114
  Serious: Yes (Hospitalization, Other)
  Sender: FDA-Public Use
  Company Number: CZ-PFIZER INC-2020420504

PATIENT
  Sex: Female

DRUGS (6)
  1. MERONEM [Suspect]
     Active Substance: MEROPENEM
     Indication: KLEBSIELLA INFECTION
  2. MERONEM [Suspect]
     Active Substance: MEROPENEM
     Indication: ACUTE RESPIRATORY DISTRESS SYNDROME
  3. MERONEM [Suspect]
     Active Substance: MEROPENEM
     Indication: SEPTIC SHOCK
     Dosage: UNK
     Dates: start: 201908
  4. AMIKIN [Suspect]
     Active Substance: AMIKACIN SULFATE
     Indication: KLEBSIELLA INFECTION
  5. AMIKIN [Suspect]
     Active Substance: AMIKACIN SULFATE
     Indication: ACUTE RESPIRATORY DISTRESS SYNDROME
  6. AMIKIN [Suspect]
     Active Substance: AMIKACIN SULFATE
     Indication: SEPTIC SHOCK
     Dosage: UNK
     Dates: start: 201908

REACTIONS (11)
  - Polyneuropathy [Unknown]
  - Arthralgia [Unknown]
  - Hyponatraemia [Unknown]
  - C-reactive protein increased [Unknown]
  - Quadriparesis [Unknown]
  - Muscular weakness [Unknown]
  - Liver disorder [Unknown]
  - Febrile neutropenia [Unknown]
  - Asthenia [Unknown]
  - Pancytopenia [Unknown]
  - Dyslipidaemia [Unknown]

NARRATIVE: CASE EVENT DATE: 201909
